FAERS Safety Report 4861032-2 (Version None)
Quarter: 2005Q4

REPORT INFORMATION
  Report Type: 
  Country: None (occurrence: None)
  Receive Date: 20051216
  Receipt Date: 20051128
  Transmission Date: 20060501
  Serious: Yes (Hospitalization, Other)
  Sender: FDA-Public Use
  Company Number: US200512000796

PATIENT
  Age: 48 Year
  Sex: Male
  Weight: 98.9 kg

DRUGS (10)
  1. ZYPREXA [Suspect]
     Dosage: SEE IMAGE
     Route: 065
     Dates: start: 20010227, end: 20010521
  2. ZYPREXA [Suspect]
     Dosage: SEE IMAGE
     Route: 065
     Dates: start: 20010703, end: 20021201
  3. ZYPREXA [Suspect]
     Dosage: SEE IMAGE
     Route: 065
     Dates: start: 20021216, end: 20030401
  4. REMERON [Concomitant]
  5. BUSPAR [Concomitant]
  6. CARBAMAZEPINE [Concomitant]
  7. DEPAKOTE [Concomitant]
  8. LITHOBID [Concomitant]
  9. LIPITOR [Concomitant]
  10. DIOVAN [Concomitant]

REACTIONS (30)
  - ANAEMIA [None]
  - ASPIRATION TRACHEAL ABNORMAL [None]
  - BLOOD CREATININE INCREASED [None]
  - BLOOD UREA INCREASED [None]
  - CARDIAC FAILURE CONGESTIVE [None]
  - CEREBELLAR INFARCTION [None]
  - DIABETES MELLITUS NON-INSULIN-DEPENDENT [None]
  - DIABETIC COMA [None]
  - DIABETIC KETOACIDOSIS [None]
  - DRUG SCREEN POSITIVE [None]
  - ELECTROCARDIOGRAM ST SEGMENT ABNORMAL [None]
  - ELECTROCARDIOGRAM T WAVE ABNORMAL [None]
  - GASTRITIS [None]
  - GLYCOSYLATED HAEMOGLOBIN INCREASED [None]
  - HAEMATEMESIS [None]
  - HAEMORRHAGIC INFARCTION [None]
  - HEPATIC STEATOSIS [None]
  - HYPERNATRAEMIA [None]
  - HYPERTRIGLYCERIDAEMIA [None]
  - MENTAL STATUS CHANGES [None]
  - OPIATES POSITIVE [None]
  - PANCREATITIS ACUTE [None]
  - PERONEAL NERVE PALSY [None]
  - PNEUMONIA ASPIRATION [None]
  - PRESCRIBED OVERDOSE [None]
  - RESPIRATORY FAILURE [None]
  - RHABDOMYOLYSIS [None]
  - SINUS TACHYCARDIA [None]
  - STAPHYLOCOCCAL INFECTION [None]
  - UPPER GASTROINTESTINAL HAEMORRHAGE [None]
